FAERS Safety Report 5745697-9 (Version None)
Quarter: 2008Q2

REPORT INFORMATION
  Report Type: 
  Country: None (occurrence: None)
  Receive Date: 20080521
  Receipt Date: 20080514
  Transmission Date: 20081010
  Serious: Yes (Other)
  Sender: FDA-Public Use
  Company Number: JP-BOEHRINGER INGELHEIM GMBH, GERMANY-2008-BP-06928NB

PATIENT
  Sex: Male
  Weight: 42 kg

DRUGS (3)
  1. SPIRIVA [Suspect]
     Indication: BRONCHITIS CHRONIC
     Route: 055
     Dates: start: 20080403, end: 20080404
  2. MEPTIN [Concomitant]
     Indication: BRONCHITIS CHRONIC
     Route: 048
     Dates: start: 20080312
  3. MUCODYNE [Concomitant]
     Indication: BRONCHITIS CHRONIC
     Route: 048
     Dates: start: 20080312

REACTIONS (2)
  - DYSPNOEA [None]
  - PALPITATIONS [None]
